FAERS Safety Report 10441660 (Version 1)
Quarter: 2014Q3

REPORT INFORMATION
  Report Type: Spontaneous
  Country: CH (occurrence: CH)
  Receive Date: 20140909
  Receipt Date: 20140909
  Transmission Date: 20150326
  Serious: Yes (Life-Threatening)
  Sender: FDA-Public Use
  Company Number: CH-ASTRAZENECA-2014SE65535

PATIENT
  Age: 22164 Day
  Sex: Male
  Weight: 85 kg

DRUGS (27)
  1. HEPARIN [Concomitant]
     Active Substance: HEPARIN SODIUM
     Route: 042
     Dates: start: 20140703
  2. LYSTHENON [Concomitant]
     Dosage: 100, ONCE
     Route: 042
     Dates: start: 20140704, end: 20140704
  3. ASPIRIN CARDIO [Suspect]
     Active Substance: ASPIRIN
     Route: 048
     Dates: start: 20140704
  4. CORDARONE [Suspect]
     Active Substance: AMIODARONE HYDROCHLORIDE
     Dosage: 30-60 MG/H
     Route: 041
     Dates: start: 20140705
  5. ACTRAPID [Concomitant]
     Active Substance: INSULIN HUMAN
     Route: 042
     Dates: start: 20140704
  6. INHIBACE MITE [Concomitant]
  7. SERTRALINE [Concomitant]
     Active Substance: SERTRALINE HYDROCHLORIDE
  8. MORPHIN [Concomitant]
     Active Substance: MORPHINE
     Route: 042
     Dates: start: 20140703, end: 20140704
  9. MAGNESIUM [Concomitant]
     Active Substance: MAGNESIUM
     Dosage: 8 MMOL
     Route: 042
     Dates: start: 20140704, end: 20140704
  10. ASPEGIC [Concomitant]
     Active Substance: ASPIRIN DL-LYSINE
     Route: 042
     Dates: start: 20140703, end: 20140703
  11. METFIN [Concomitant]
     Active Substance: METFORMIN HYDROCHLORIDE
  12. AUGMENTIN [Concomitant]
     Active Substance: AMOXICILLIN\CLAVULANATE POTASSIUM
     Route: 042
     Dates: start: 20140706
  13. NEXIUM [Suspect]
     Active Substance: ESOMEPRAZOLE MAGNESIUM
     Route: 041
     Dates: start: 20140704, end: 20140706
  14. DOBUTAMIN FRESENIUS [Concomitant]
     Dosage: 600 MG/MIN
     Route: 042
     Dates: start: 20140703
  15. ATORVASTATIN PFIZER [Concomitant]
     Active Substance: ATORVASTATIN
     Route: 048
     Dates: start: 20140704
  16. ALFUZOSIN [Concomitant]
     Active Substance: ALFUZOSIN
  17. REOPRO [Concomitant]
     Active Substance: ABCIXIMAB
     Route: 042
     Dates: start: 20140703, end: 20140704
  18. TRACRIUM [Concomitant]
     Active Substance: ATRACURIUM BESYLATE
     Route: 042
     Dates: start: 20140704, end: 20140704
  19. SINTENYL [Concomitant]
     Active Substance: FENTANYL CITRATE
     Dosage: 0.1-0.2 MG/H
     Route: 042
     Dates: start: 20140704
  20. PROPOFOL LIPURO [Concomitant]
     Active Substance: PROPOFOL
     Route: 042
     Dates: start: 20140704
  21. KONAKION MM [Concomitant]
     Route: 042
     Dates: start: 20140706, end: 20140706
  22. PERFALGAN [Suspect]
     Active Substance: ACETAMINOPHEN
     Route: 041
     Dates: start: 20140703
  23. NOVALGIN [Concomitant]
     Active Substance: METAMIZOLE SODIUM
     Route: 042
     Dates: start: 20140705
  24. DORMICUM [Concomitant]
     Active Substance: MIDAZOLAM\MIDAZOLAM HYDROCHLORIDE
     Dosage: 0.5-7 MG
     Route: 042
     Dates: start: 20140703
  25. ADRENALIN [Concomitant]
     Active Substance: EPINEPHRINE
     Dates: start: 20140705, end: 20140705
  26. EFIENT [Concomitant]
     Active Substance: PRASUGREL HYDROCHLORIDE
     Route: 048
     Dates: start: 20140703
  27. NORADRENALIN [Concomitant]
     Active Substance: NOREPINEPHRINE\NOREPINEPHRINE BITARTRATE
     Route: 042
     Dates: start: 20140703

REACTIONS (1)
  - Coombs negative haemolytic anaemia [Not Recovered/Not Resolved]

NARRATIVE: CASE EVENT DATE: 20140706
